FAERS Safety Report 4714175-8 (Version None)
Quarter: 2005Q3

REPORT INFORMATION
  Report Type: 
  Country: None (occurrence: None)
  Receive Date: 20050714
  Receipt Date: 20050701
  Transmission Date: 20060218
  Serious: Yes (Life-Threatening, Hospitalization)
  Sender: FDA-Public Use
  Company Number: JP-NOVOPROD-245264

PATIENT
  Age: 72 Year
  Sex: Female
  Weight: 44 kg

DRUGS (8)
  1. NOVORAPID 30 MIX CHU [Suspect]
     Indication: DIABETES MELLITUS NON-INSULIN-DEPENDENT
     Dosage: 16 IU, SINGLE
     Route: 058
     Dates: start: 20050531, end: 20050531
  2. ALDACTONE [Concomitant]
     Indication: CARDIAC FAILURE
     Dates: start: 20050524
  3. FUROSEMIDE [Concomitant]
     Indication: CARDIAC FAILURE
     Dates: start: 20050524
  4. LANIRAPID [Concomitant]
     Indication: CARDIAC FAILURE CHRONIC
     Dates: start: 20050524
  5. ADALAT [Concomitant]
     Indication: HYPERTENSION
     Dates: start: 20041117
  6. BLOPRESS [Concomitant]
     Indication: HYPERTENSION
     Dates: start: 20041117
  7. FENOFIBRATE [Concomitant]
     Indication: HYPERLIPIDAEMIA
     Dates: start: 20050604
  8. MITIGLINIDE [Concomitant]
     Indication: DIABETES MELLITUS NON-INSULIN-DEPENDENT

REACTIONS (5)
  - ANAPHYLACTIC SHOCK [None]
  - ATRIAL FIBRILLATION [None]
  - EXTRASYSTOLES [None]
  - MYOCARDIAL ISCHAEMIA [None]
  - REFUSAL OF TREATMENT BY PATIENT [None]
